FAERS Safety Report 5211507-1 (Version None)
Quarter: 2007Q1

REPORT INFORMATION
  Report Type: 
  Country: None (occurrence: None)
  Receive Date: 20070116
  Receipt Date: 20070104
  Transmission Date: 20070707
  Serious: Yes (Death)
  Sender: FDA-Public Use
  Company Number: DSA_81747_2006

PATIENT
  Age: 51 Year
  Sex: Female

DRUGS (11)
  1. XYREM [Suspect]
     Indication: INSOMNIA
     Dosage: 3 GM (3 GM, 1 IN 1 D), ORAL
     Route: 048
     Dates: start: 20060314, end: 20060410
  2. XYREM [Suspect]
     Indication: PAIN
     Dosage: 3 GM (3 GM, 1 IN 1 D), ORAL
     Route: 048
     Dates: start: 20060314, end: 20060410
  3. DEPAKOTE [Concomitant]
  4. TEGRETOL [Concomitant]
  5. CYMBALTA (DULOXETINE HYDROCHLORIED) (CAPSULES) [Concomitant]
  6. TIZANIDINE HCL [Concomitant]
  7. ACTONEL [Concomitant]
  8. CELEBREX [Concomitant]
  9. PROLOSEC [Concomitant]
  10. NEURONTIN [Concomitant]
  11. SEROQUEL [Concomitant]

REACTIONS (1)
  - OVERDOSE [None]
